FAERS Safety Report 8356933-7 (Version None)
Quarter: 2012Q2

REPORT INFORMATION
  Report Type: 
  Country: None (occurrence: None)
  Receive Date: 20120514
  Receipt Date: 20120509
  Transmission Date: 20120825
  Serious: Yes (Life-Threatening, Other)
  Sender: FDA-Public Use
  Company Number: IE-PFIZER INC-2012060518

PATIENT
  Age: 54 Year
  Sex: Female

DRUGS (1)
  1. GENOTROPIN [Suspect]
     Dosage: 0.2 MG, 1X/DAY
     Dates: end: 20110101

REACTIONS (1)
  - BREAST CANCER [None]
